FAERS Safety Report 4504460-7 (Version None)
Quarter: 2004Q4

REPORT INFORMATION
  Report Type: 
  Country: None (occurrence: None)
  Receive Date: 20041117
  Receipt Date: 20041117
  Transmission Date: 20050328
  Serious: Yes (Hospitalization)
  Sender: FDA-Public Use
  Company Number: None

PATIENT
  Age: 41 Year
  Sex: Female
  Weight: 62.6 kg

DRUGS (3)
  1. ERTAPENEM [Suspect]
     Indication: OSTEOMYELITIS
     Dosage: 500 MG IVPB Q 24 H
     Route: 042
     Dates: start: 20040923, end: 20041003
  2. NACL [Concomitant]
  3. STERILE WATER [Concomitant]

REACTIONS (1)
  - HALLUCINATION [None]
